FAERS Safety Report 21761184 (Version 1)
Quarter: 2022Q4

REPORT INFORMATION
  Report Type: Spontaneous
  Country: ES (occurrence: ES)
  Receive Date: 20221221
  Receipt Date: 20221221
  Transmission Date: 20230113
  Serious: Yes (Other)
  Sender: FDA-Public Use
  Company Number: None

PATIENT
  Age: 69 Year
  Sex: Male

DRUGS (9)
  1. INFLIXIMAB [Suspect]
     Active Substance: INFLIXIMAB
     Indication: Crohn^s disease
     Route: 042
     Dates: start: 20220127, end: 20221115
  2. METFORMIN [Concomitant]
     Active Substance: METFORMIN HYDROCHLORIDE
     Indication: Product used for unknown indication
     Dosage: FILM-COATED TABLET EFG, 50 TABLETS,
     Route: 048
     Dates: start: 20220120
  3. CALCIFEDIOL [Concomitant]
     Active Substance: CALCIFEDIOL
     Indication: Product used for unknown indication
     Dosage: 10 CAPSULES (PVC/PVDC-ALUMINIUM BLISTER)
     Route: 048
     Dates: start: 20220908
  4. AMLODIPINE [Concomitant]
     Active Substance: AMLODIPINE BESYLATE
     Indication: Product used for unknown indication
     Dosage: EFG TABLET, 30 TABLETS
     Route: 048
     Dates: start: 20140409
  5. ALLOPURINOL [Concomitant]
     Active Substance: ALLOPURINOL
     Indication: Product used for unknown indication
     Dosage: EFG TABLET, 100 TABLETS
     Route: 048
     Dates: start: 20141017
  6. ANORO ELLIPTA [Concomitant]
     Active Substance: UMECLIDINIUM BROMIDE\VILANTEROL TRIFENATATE
     Indication: Product used for unknown indication
     Dosage: 55 MCG/22 MCG , 30 DOSES, INHALATION USE
     Route: 065
     Dates: start: 20210310
  7. FENOFIBRATE [Concomitant]
     Active Substance: FENOFIBRATE
     Indication: Product used for unknown indication
     Dosage: 30 TABLETS
     Route: 048
     Dates: start: 20200930
  8. ELIQUIS [Concomitant]
     Active Substance: APIXABAN
     Indication: Product used for unknown indication
     Dosage: 60 TABLETS
     Route: 048
     Dates: start: 20220628
  9. EPROSARTAN MESYLATE\HYDROCHLOROTHIAZIDE [Concomitant]
     Active Substance: EPROSARTAN MESYLATE\HYDROCHLOROTHIAZIDE
     Indication: Product used for unknown indication
     Dosage: 600 MG/12.5 MG, 28 TABLETS
     Route: 048
     Dates: start: 20130523

REACTIONS (1)
  - Psoriasis [Recovering/Resolving]

NARRATIVE: CASE EVENT DATE: 20220501
